FAERS Safety Report 9258577 (Version 1)
Quarter: 2013Q1

REPORT INFORMATION
  Report Type: Spontaneous
  Country: US (occurrence: None)
  Receive Date: 20121212
  Receipt Date: 20121212
  Transmission Date: 20140127
  Serious: No
  Sender: FDA-Public Use
  Company Number: 1210USA012992

PATIENT
  Sex: Male

DRUGS (2)
  1. VICTRELIS (BOCEPREVIR) CAPSULE, 200MG [Suspect]
     Indication: HEPATITIS C
     Dosage: 4 DF , Q8H, ORAL
  2. PEGASYS (PEGINTERFERON ALFA-2A) [Suspect]

REACTIONS (3)
  - Lethargy [None]
  - Nausea [None]
  - Diarrhoea [None]
